FAERS Safety Report 25951660 (Version 1)
Quarter: 2025Q4

REPORT INFORMATION
  Report Type: Spontaneous
  Country: JP (occurrence: JP)
  Receive Date: 20251023
  Receipt Date: 20251023
  Transmission Date: 20260117
  Serious: Yes (Death, Hospitalization, Other)
  Sender: AMGEN
  Company Number: JP-AMGEN-JPNSP2025206042

PATIENT

DRUGS (3)
  1. BEVACIZUMAB [Suspect]
     Active Substance: BEVACIZUMAB
     Indication: Brain stem glioma
     Dosage: UNK
     Route: 065
  2. METHOTREXATE [Concomitant]
     Active Substance: METHOTREXATE
     Indication: Brain stem glioma
  3. TEMOZOLOMIDE [Concomitant]
     Active Substance: TEMOZOLOMIDE
     Indication: Brain stem glioma

REACTIONS (23)
  - Death [Fatal]
  - Unevaluable event [Unknown]
  - Terminal state [Unknown]
  - Paralysis [Unknown]
  - VIth nerve paralysis [Unknown]
  - Facial paralysis [Unknown]
  - Respiratory distress [Unknown]
  - Seizure [Unknown]
  - CSF pressure increased [Unknown]
  - Off label use [Unknown]
  - Condition aggravated [Unknown]
  - Dysphagia [Unknown]
  - Urinary tract disorder [Unknown]
  - Tachycardia [Unknown]
  - Movement disorder [Unknown]
  - Speech disorder [Unknown]
  - Sleep disorder [Unknown]
  - Anxiety [Unknown]
  - Insomnia [Unknown]
  - Pain [Unknown]
  - Headache [Unknown]
  - Hypertension [Unknown]
  - Vomiting [Unknown]
